FAERS Safety Report 9217005 (Version 1)
Quarter: 2013Q2

REPORT INFORMATION
  Report Type: Spontaneous
  Country: US (occurrence: US)
  Receive Date: 20130408
  Receipt Date: 20130408
  Transmission Date: 20140414
  Serious: Yes (Death, Other)
  Sender: FDA-Public Use
  Company Number: US-ELI_LILLY_AND_COMPANY-US201304000863

PATIENT
  Sex: Male

DRUGS (1)
  1. ALIMTA [Suspect]
     Indication: LUNG NEOPLASM MALIGNANT

REACTIONS (4)
  - Death [Fatal]
  - Renal impairment [Unknown]
  - Pancytopenia [Not Recovered/Not Resolved]
  - Fungal infection [Unknown]
